FAERS Safety Report 8276065-6 (Version None)
Quarter: 2012Q2

REPORT INFORMATION
  Report Type: 
  Country: None (occurrence: None)
  Receive Date: 20120412
  Receipt Date: 20120402
  Transmission Date: 20120825
  Serious: Yes (Other)
  Sender: FDA-Public Use
  Company Number: DE-JNJFOC-20120303656

PATIENT
  Sex: Female
  Weight: 68 kg

DRUGS (18)
  1. TAPENTADOL HYDROCHLORIDE [Suspect]
     Indication: BACK PAIN
     Route: 048
     Dates: start: 20111005, end: 20111019
  2. TRAMADOL HCL [Concomitant]
     Indication: ARTHRALGIA
     Route: 065
  3. NSAID'S [Concomitant]
     Indication: ARTHRALGIA
  4. ZOLPIDEM [Concomitant]
     Indication: INITIAL INSOMNIA
     Route: 065
  5. PROCAINE HYDROCHLORIDE [Concomitant]
     Indication: PRODUCT USED FOR UNKNOWN INDICATION
     Route: 065
  6. TRIAM [Concomitant]
     Indication: PRODUCT USED FOR UNKNOWN INDICATION
     Route: 061
  7. GABAPENTIN [Concomitant]
     Indication: PRODUCT USED FOR UNKNOWN INDICATION
     Route: 065
  8. TAPENTADOL HYDROCHLORIDE [Suspect]
     Route: 048
     Dates: start: 20111019, end: 20111207
  9. TRAMADOL HCL [Concomitant]
     Indication: BACK PAIN
     Route: 065
  10. NSAID'S [Concomitant]
     Indication: BACK PAIN
  11. TAPENTADOL HYDROCHLORIDE [Suspect]
     Route: 048
     Dates: start: 20111019, end: 20111207
  12. ACETAMINOPHEN W/ CODEINE [Concomitant]
     Indication: PRODUCT USED FOR UNKNOWN INDICATION
     Route: 065
  13. IRBESARTAN [Concomitant]
     Indication: HYPERTENSION
     Route: 065
     Dates: start: 20111005
  14. OMEPRAZOLE [Concomitant]
     Indication: GASTRITIS
     Route: 065
  15. TAPENTADOL HYDROCHLORIDE [Suspect]
     Indication: ARTHRALGIA
     Route: 048
     Dates: start: 20111005, end: 20111019
  16. ANALGESICS [Concomitant]
     Indication: PRODUCT USED FOR UNKNOWN INDICATION
     Route: 065
  17. LAXATIVES [Concomitant]
     Indication: PRODUCT USED FOR UNKNOWN INDICATION
     Route: 065
  18. METOPROLOL TARTRATE [Concomitant]
     Indication: HYPERTENSION
     Route: 065
     Dates: start: 20110914

REACTIONS (5)
  - DRUG INEFFECTIVE [None]
  - SOMNOLENCE [None]
  - FATIGUE [None]
  - CARDIOVASCULAR DISORDER [None]
  - DIZZINESS [None]
